FAERS Safety Report 6338038-X (Version None)
Quarter: 2009Q3

REPORT INFORMATION
  Report Type: 
  Country: None (occurrence: None)
  Receive Date: 20090902
  Receipt Date: 20090820
  Transmission Date: 20100115
  Serious: Yes (Hospitalization)
  Sender: FDA-Public Use
  Company Number: GB-MYLANLABS-2009S1014980

PATIENT
  Age: 80 Year
  Sex: Male
  Weight: 70 kg

DRUGS (5)
  1. ENALAPRIL MALEATE [Suspect]
     Indication: DRUG USE FOR UNKNOWN INDICATION
     Route: 048
  2. ATORVASTATIN [Concomitant]
     Indication: DRUG USE FOR UNKNOWN INDICATION
  3. FERROUS SULFATE TAB [Concomitant]
     Indication: DRUG USE FOR UNKNOWN INDICATION
  4. OMEPRAZOLE [Concomitant]
     Indication: DRUG USE FOR UNKNOWN INDICATION
  5. SOTALOL HCL [Concomitant]
     Indication: DRUG USE FOR UNKNOWN INDICATION

REACTIONS (4)
  - ASTHENIA [None]
  - GRAND MAL CONVULSION [None]
  - HYPONATRAEMIA [None]
  - MALAISE [None]
